FAERS Safety Report 8150770-4 (Version None)
Quarter: 2012Q1

REPORT INFORMATION
  Report Type: 
  Country: None (occurrence: None)
  Receive Date: 20120220
  Receipt Date: 20120216
  Transmission Date: 20120608
  Serious: Yes (Death, Hospitalization, Other)
  Sender: FDA-Public Use
  Company Number: US-BAYER-201038758NA

PATIENT
  Age: 49 Year
  Sex: Female
  Weight: 63.492 kg

DRUGS (7)
  1. YAZ [Suspect]
     Indication: CONTRACEPTION
     Dosage: UNK
     Route: 048
     Dates: start: 20080401, end: 20081201
  2. LOVENOX [Concomitant]
  3. AGGRASTAT [Concomitant]
  4. ASPIRIN [Concomitant]
  5. BLOOD PRESSURE MEDICATION (NOS) [Concomitant]
     Indication: HYPERTENSION
     Dosage: UNK
     Dates: start: 20080101, end: 20080101
  6. LOPRESSOR [Concomitant]
  7. PLAVIX [Concomitant]

REACTIONS (2)
  - GALLBLADDER INJURY [None]
  - MYOCARDIAL INFARCTION [None]
